FAERS Safety Report 5782773-9 (Version None)
Quarter: 2008Q2

REPORT INFORMATION
  Report Type: 
  Country: None (occurrence: None)
  Receive Date: 20080624
  Receipt Date: 20080603
  Transmission Date: 20081010
  Serious: No
  Sender: FDA-Public Use
  Company Number: US-BAYER-200817888NA

PATIENT
  Age: 23 Year
  Sex: Female
  Weight: 75 kg

DRUGS (4)
  1. MIRENA [Suspect]
     Indication: CONTRACEPTION
     Route: 015
     Dates: start: 20080310
  2. PROZAC [Concomitant]
     Indication: POSTPARTUM DEPRESSION
  3. XANAX [Concomitant]
     Indication: ANXIETY
  4. DOXYCYCLINE [Concomitant]
     Indication: STAPHYLOCOCCAL INFECTION

REACTIONS (9)
  - CHILLS [None]
  - DIZZINESS [None]
  - FEELING ABNORMAL [None]
  - GENITAL HAEMORRHAGE [None]
  - HOT FLUSH [None]
  - NIGHT SWEATS [None]
  - PROCEDURAL DIZZINESS [None]
  - PROCEDURAL PAIN [None]
  - PYREXIA [None]
